FAERS Safety Report 6599822-0 (Version None)
Quarter: 2010Q1

REPORT INFORMATION
  Report Type: 
  Country: None (occurrence: None)
  Receive Date: 20100224
  Receipt Date: 20100216
  Transmission Date: 20100710
  Serious: Yes (Hospitalization, Other)
  Sender: FDA-Public Use
  Company Number: US-ELI_LILLY_AND_COMPANY-US201002005007

PATIENT
  Sex: Male

DRUGS (5)
  1. HUMALOG [Suspect]
     Indication: TYPE 1 DIABETES MELLITUS
     Dosage: UNK, AS NEEDED
     Dates: start: 20000101
  2. HUMULIN N [Suspect]
     Indication: TYPE 1 DIABETES MELLITUS
     Dates: end: 20000101
  3. HUMULIN R [Suspect]
     Indication: TYPE 1 DIABETES MELLITUS
     Dates: end: 20000101
  4. LANTUS [Concomitant]
  5. SYNTHROID [Concomitant]
     Indication: HYPOTHYROIDISM

REACTIONS (6)
  - HYPOTHYROIDISM [None]
  - INFECTION [None]
  - KNEE ARTHROPLASTY [None]
  - PSEUDOMONAS INFECTION [None]
  - RHEUMATOID ARTHRITIS [None]
  - STAPHYLOCOCCAL INFECTION [None]
